FAERS Safety Report 23053455 (Version 1)
Quarter: 2023Q4

REPORT INFORMATION
  Report Type: Spontaneous
  Country: IT (occurrence: IT)
  Receive Date: 20231011
  Receipt Date: 20231011
  Transmission Date: 20240110
  Serious: Yes (Other)
  Sender: FDA-Public Use
  Company Number: IT-MINISAL02-947204

PATIENT
  Age: 91 Year
  Sex: Female

DRUGS (1)
  1. BISOPROLOL [Suspect]
     Active Substance: BISOPROLOL\BISOPROLOL FUMARATE
     Indication: Hypertension
     Dosage: BISOPROLOL 2.5 MG ONCE DAILY
     Route: 048

REACTIONS (2)
  - Essential hypertension [Recovering/Resolving]
  - Product administration interrupted [Recovering/Resolving]

NARRATIVE: CASE EVENT DATE: 20230309
